FAERS Safety Report 15677581 (Version 2)
Quarter: 2018Q4

REPORT INFORMATION
  Report Type: Spontaneous
  Country: JP (occurrence: JP)
  Receive Date: 20181130
  Receipt Date: 20181210
  Transmission Date: 20190205
  Serious: Yes (Hospitalization)
  Sender: FDA-Public Use
  Company Number: JP-PFIZER INC-2018496719

PATIENT
  Age: 25 Month
  Sex: Male

DRUGS (3)
  1. MIDAZOLAM [Suspect]
     Active Substance: MIDAZOLAM HYDROCHLORIDE
     Indication: FEBRILE CONVULSION
     Dosage: UNK
     Route: 065
  2. THIOPENTAL SODIUM. [Concomitant]
     Active Substance: THIOPENTAL SODIUM
     Indication: SEIZURE
     Dosage: UNK
     Route: 065
  3. FOSTOIN [Suspect]
     Active Substance: FOSPHENYTOIN SODIUM
     Indication: FEBRILE CONVULSION
     Dosage: UNK
     Route: 065

REACTIONS (2)
  - Encephalopathy [Unknown]
  - Acute focal bacterial nephritis [Recovering/Resolving]
